FAERS Safety Report 4486722-5 (Version None)
Quarter: 2004Q4

REPORT INFORMATION
  Report Type: 
  Country: None (occurrence: None)
  Receive Date: 20041021
  Receipt Date: 20041011
  Transmission Date: 20050328
  Serious: Yes (Other)
  Sender: FDA-Public Use
  Company Number: 2004237678GB

PATIENT
  Age: 36 Year
  Sex: Female

DRUGS (1)
  1. SYNAREL [Suspect]
     Dosage: NASAL
     Route: 045

REACTIONS (1)
  - MULTIPLE SCLEROSIS [None]
